FAERS Safety Report 8112080-0 (Version None)
Quarter: 2012Q1

REPORT INFORMATION
  Report Type: 
  Country: None (occurrence: None)
  Receive Date: 20120203
  Receipt Date: 20120124
  Transmission Date: 20120608
  Serious: Yes (Other)
  Sender: FDA-Public Use
  Company Number: US-PFIZER INC-2012003268

PATIENT
  Sex: Male
  Weight: 90.7 kg

DRUGS (5)
  1. LISINOPRIL [Suspect]
     Indication: HYPERTENSION
     Dosage: 20 MG, 1X/DAY
     Route: 048
  2. ACCUPRIL [Suspect]
     Indication: HYPERTENSION
     Dosage: 20 MG, 1X/DAY
     Route: 065
  3. VIAGRA [Suspect]
     Indication: ERECTILE DYSFUNCTION
     Dosage: 50 MG, ONE TO TWO TIMES A WEEK
     Route: 065
  4. ATENOLOL [Suspect]
     Indication: HYPERTENSION
     Dosage: 150 MG, DAILY
     Route: 065
  5. NORVASC [Suspect]
     Indication: HYPERTENSION
     Dosage: 20 MG, DAILY
     Route: 065

REACTIONS (1)
  - DEMENTIA ALZHEIMER'S TYPE [None]
